FAERS Safety Report 7691445-5 (Version None)
Quarter: 2011Q3

REPORT INFORMATION
  Report Type: 
  Country: None (occurrence: None)
  Receive Date: 20110818
  Receipt Date: 20110815
  Transmission Date: 20111222
  Serious: Yes (Death)
  Sender: FDA-Public Use
  Company Number: PHHY2011DE73216

PATIENT
  Sex: Male

DRUGS (8)
  1. MOVIPREP [Concomitant]
     Dosage: 1 SACHET DAILY
     Route: 048
     Dates: start: 20040707
  2. NORVASC [Concomitant]
     Dosage: 5 MG, UNK
     Route: 048
     Dates: start: 20040729
  3. EXELON [Suspect]
     Indication: DEMENTIA
     Dosage: 3 MG, DAILY
     Route: 048
     Dates: start: 20040712
  4. TRAZODONE HCL [Suspect]
     Dosage: 100 MG DAILY
     Route: 048
     Dates: start: 20040721
  5. MEMANTINE HYDROCHLORIDE [Suspect]
     Dosage: 10 MG DAILY
     Route: 048
  6. TRAZODONE HCL [Suspect]
     Dosage: 50 MG DAILY
     Route: 048
     Dates: start: 20040719, end: 20040720
  7. MELNEURIN [Suspect]
     Dosage: ON DEMAND 50 TO 100 MG
     Route: 048
     Dates: start: 20040707, end: 20040729
  8. VALORON [Concomitant]
     Dosage: 108 MG, UNK
     Route: 048
     Dates: start: 20040729

REACTIONS (2)
  - DEATH [None]
  - RESTLESSNESS [None]
